FAERS Safety Report 10452428 (Version 1)
Quarter: 2014Q3

REPORT INFORMATION
  Report Type: Spontaneous
  Country: CO (occurrence: CO)
  Receive Date: 20140915
  Receipt Date: 20140915
  Transmission Date: 20150326
  Serious: Yes (Death, Hospitalization)
  Sender: FDA-Public Use
  Company Number: CO-UCBSA-2014011270

PATIENT
  Age: 69 Year
  Sex: Female

DRUGS (2)
  1. RASAGILINE [Concomitant]
     Active Substance: RASAGILINE
     Dosage: DAILY DOSE: 1 MG
     Dates: start: 20140808
  2. NEUPRO [Suspect]
     Active Substance: ROTIGOTINE
     Indication: PARKINSON^S DISEASE
     Dosage: DAILY DOSE: 4MG
     Route: 062
     Dates: start: 20140508, end: 20140808

REACTIONS (5)
  - Anxiety [Unknown]
  - Fall [Unknown]
  - Cardio-respiratory arrest [Fatal]
  - Hip fracture [Unknown]
  - Nervousness [Unknown]

NARRATIVE: CASE EVENT DATE: 201408
